FAERS Safety Report 24575636 (Version 1)
Quarter: 2024Q4

REPORT INFORMATION
  Report Type: Spontaneous
  Country: US (occurrence: None)
  Receive Date: 20241101
  Receipt Date: 20241101
  Transmission Date: 20250115
  Serious: Yes (Other)
  Sender: Public
  Company Number: None

PATIENT
  Sex: 0

DRUGS (1)
  1. BOTOX [Suspect]
     Active Substance: ONABOTULINUMTOXINA
     Indication: Torticollis

REACTIONS (3)
  - Burning sensation [None]
  - Thyroid cancer [None]
  - Product prescribing error [None]

NARRATIVE: CASE EVENT DATE: 20241101
